FAERS Safety Report 23447579 (Version 1)
Quarter: 2024Q1

REPORT INFORMATION
  Report Type: Spontaneous
  Country: US (occurrence: US)
  Receive Date: 20240126
  Receipt Date: 20240126
  Transmission Date: 20240409
  Serious: No
  Sender: FDA-Public Use
  Company Number: US-BAYER-2024A015216

PATIENT
  Sex: Female

DRUGS (5)
  1. CLARITIN [Suspect]
     Active Substance: LORATADINE
     Indication: Seasonal allergy
  2. CLARITIN [Suspect]
     Active Substance: LORATADINE
     Indication: Eye pruritus
  3. CLARITIN [Suspect]
     Active Substance: LORATADINE
     Indication: Sneezing
  4. CLARITIN [Suspect]
     Active Substance: LORATADINE
     Indication: Rhinorrhoea
  5. CLARITIN [Suspect]
     Active Substance: LORATADINE
     Indication: Lacrimation increased

REACTIONS (1)
  - Therapeutic product effect decreased [None]
